FAERS Safety Report 5872736-7 (Version None)
Quarter: 2008Q3

REPORT INFORMATION
  Report Type: 
  Country: None (occurrence: None)
  Receive Date: 20080905
  Receipt Date: 20080829
  Transmission Date: 20090109
  Serious: Yes (Other)
  Sender: FDA-Public Use
  Company Number: US-AMGEN-STX294498

PATIENT
  Sex: Female
  Weight: 90.8 kg

DRUGS (6)
  1. ENBREL [Suspect]
     Indication: ANKYLOSING SPONDYLITIS
     Route: 058
     Dates: start: 20050822
  2. VIVELLE [Suspect]
     Route: 062
  3. CELEBREX [Concomitant]
     Route: 065
  4. CLARITIN [Concomitant]
     Route: 065
  5. VITAMIN D [Concomitant]
     Route: 065
  6. SUDAFED 12 HOUR [Concomitant]
     Route: 065

REACTIONS (1)
  - BREAST MASS [None]
